FAERS Safety Report 6662629-X (Version None)
Quarter: 2010Q1

REPORT INFORMATION
  Report Type: 
  Country: None (occurrence: None)
  Receive Date: 20100329
  Receipt Date: 20100316
  Transmission Date: 20100710
  Serious: Yes (Other)
  Sender: FDA-Public Use
  Company Number: 2010AL001666

PATIENT
  Age: 60 Year
  Sex: Male

DRUGS (8)
  1. CITALOPRAM HYDROBROMIDE [Suspect]
     Indication: DEPRESSION
     Dosage: 20 MG; PO
     Route: 048
     Dates: end: 20100212
  2. CLOZARIL [Concomitant]
  3. METFORMIN HCL [Concomitant]
  4. GLICLAZIDE [Concomitant]
  5. IRON [Concomitant]
  6. PROPRANOLOL [Concomitant]
  7. ACETYLSALICYLIC ACID [Concomitant]
  8. OMEPRAZOLE [Concomitant]

REACTIONS (4)
  - ANTIPSYCHOTIC DRUG LEVEL INCREASED [None]
  - BLOOD ALKALINE PHOSPHATASE INCREASED [None]
  - BLOOD SODIUM DECREASED [None]
  - PNEUMONIA [None]
